FAERS Safety Report 8082438-7 (Version None)
Quarter: 2012Q1

REPORT INFORMATION
  Report Type: 
  Country: None (occurrence: None)
  Receive Date: 20120127
  Receipt Date: 20110217
  Transmission Date: 20120608
  Serious: Yes (Other)
  Sender: FDA-Public Use
  Company Number: US-ABBOTT-11P-163-0706255-00

PATIENT
  Sex: Male
  Weight: 108.96 kg

DRUGS (13)
  1. HUMIRA [Suspect]
     Indication: PSORIASIS
     Dates: start: 20090101, end: 20100101
  2. HYDROCHLOROTHIAZIDE [Concomitant]
     Indication: HYPERTENSION
  3. DIAZEPAM [Concomitant]
     Indication: PAIN
  4. LISINOPRIL [Concomitant]
     Indication: HYPERTENSION
  5. GABAPENTIN [Concomitant]
     Indication: PRODUCT USED FOR UNKNOWN INDICATION
  6. VITAMIN TAB [Concomitant]
     Indication: PRODUCT USED FOR UNKNOWN INDICATION
  7. MORPHINE PUMP [Concomitant]
     Indication: BACK DISORDER
  8. LEVIMIR [Concomitant]
     Indication: DIABETES MELLITUS
  9. LEVOTHYROXINE SODIUM [Concomitant]
     Indication: HYPOTHYROIDISM
  10. HUMALIN INSULIN [Concomitant]
     Indication: DIABETES MELLITUS
  11. TRAZODONE HCL [Concomitant]
     Indication: INSOMNIA
  12. PEROXETINE [Concomitant]
     Indication: DEPRESSION
  13. IBUPROFEN [Concomitant]
     Indication: PAIN

REACTIONS (2)
  - ROAD TRAFFIC ACCIDENT [None]
  - COMPRESSION FRACTURE [None]
